FAERS Safety Report 10910088 (Version 1)
Quarter: 2015Q1

REPORT INFORMATION
  Report Type: Spontaneous
  Country: US (occurrence: US)
  Receive Date: 20150312
  Receipt Date: 20150312
  Transmission Date: 20150721
  Serious: No
  Sender: FDA-Public Use
  Company Number: US-SA-2014SA143108

PATIENT
  Age: 80 Year
  Sex: Female

DRUGS (2)
  1. NASACORT ALLERGY 24HR [Suspect]
     Active Substance: TRIAMCINOLONE ACETONIDE
     Indication: EAR DISORDER
     Dosage: 2 SPRAYS PER?NOSTRIL
     Route: 045
     Dates: start: 20141004
  2. NASACORT ALLERGY 24HR [Suspect]
     Active Substance: TRIAMCINOLONE ACETONIDE
     Indication: SINUS DISORDER
     Dosage: 2 SPRAYS PER?NOSTRIL
     Route: 045
     Dates: start: 20141004

REACTIONS (1)
  - Rhinorrhoea [Unknown]
